FAERS Safety Report 18647840 (Version 1)
Quarter: 2020Q4

REPORT INFORMATION
  Report Type: Spontaneous
  Country: US (occurrence: US)
  Receive Date: 20201221
  Receipt Date: 20201221
  Transmission Date: 20210114
  Serious: Yes (Other)
  Sender: FDA-Public Use
  Company Number: None

PATIENT
  Age: 76 Year
  Sex: Male
  Weight: 78.3 kg

DRUGS (3)
  1. GAMUNEX-C [Suspect]
     Active Substance: HUMAN IMMUNOGLOBULIN G
     Indication: CHRONIC INFLAMMATORY DEMYELINATING POLYRADICULONEUROPATHY
     Route: 017
     Dates: start: 20201218, end: 20201218
  2. ACETAMINOPHEN 325MG [Concomitant]
     Dates: start: 20201218
  3. DIPHENHYDRAMINE 25MG [Concomitant]
     Active Substance: DIPHENHYDRAMINE
     Dates: start: 20201218

REACTIONS (8)
  - Pyrexia [None]
  - Dehydration [None]
  - Vertigo [None]
  - Dyspnoea [None]
  - Dry mouth [None]
  - Nausea [None]
  - Cold sweat [None]
  - Vision blurred [None]

NARRATIVE: CASE EVENT DATE: 20201218
